FAERS Safety Report 9647894 (Version 2)
Quarter: 2013Q4

REPORT INFORMATION
  Report Type: Spontaneous
  Country: GB (occurrence: GB)
  Receive Date: 20131028
  Receipt Date: 20131031
  Transmission Date: 20140711
  Serious: Yes (Life-Threatening)
  Sender: FDA-Public Use
  Company Number: GB-JNJFOC-20131015551

PATIENT
  Age: 30 Year
  Sex: Female
  Weight: 60 kg

DRUGS (1)
  1. REMICADE [Suspect]
     Indication: CROHN^S DISEASE
     Route: 042
     Dates: start: 200902, end: 201306

REACTIONS (1)
  - Squamous cell carcinoma of the vagina [Unknown]
